FAERS Safety Report 8849149 (Version 2)
Quarter: 2013Q1

REPORT INFORMATION
  Report Type: Spontaneous
  Country: BR (occurrence: None)
  Receive Date: 20121016
  Receipt Date: 20121217
  Transmission Date: 20140127
  Serious: Yes (Hospitalization)
  Sender: FDA-Public Use
  Company Number: MPS1-1000798

PATIENT
  Age: 24 Year
  Sex: 0

DRUGS (1)
  1. ALDURAZYME [Suspect]
     Indication: MUCOPOLYSACCHARIDOSIS I
     Route: 042

REACTIONS (5)
  - Depression [None]
  - Spinal cord compression [None]
  - Myoclonus [None]
  - Quadriplegia [None]
  - Inappropriate affect [None]
